FAERS Safety Report 8381415-6 (Version None)
Quarter: 2012Q2

REPORT INFORMATION
  Report Type: 
  Country: None (occurrence: None)
  Receive Date: 20120523
  Receipt Date: 20120509
  Transmission Date: 20120825
  Serious: Yes (Other)
  Sender: FDA-Public Use
  Company Number: US-ROCHE-788943

PATIENT
  Sex: Male
  Weight: 43.13 kg

DRUGS (3)
  1. ACCUTANE [Suspect]
     Indication: ACNE
     Route: 048
     Dates: start: 19830101, end: 19840101
  2. ACCUTANE [Suspect]
     Dosage: 40 MG BID ALTERNATING WITH 40 MG TID
     Route: 065
     Dates: start: 19880130, end: 19890101
  3. ACCUTANE [Suspect]

REACTIONS (9)
  - IRRITABLE BOWEL SYNDROME [None]
  - EPISTAXIS [None]
  - DEPRESSION [None]
  - COLITIS ULCERATIVE [None]
  - LIP DRY [None]
  - ANAEMIA [None]
  - INFLAMMATORY BOWEL DISEASE [None]
  - EMOTIONAL DISTRESS [None]
  - INTESTINAL HAEMORRHAGE [None]
